FAERS Safety Report 16968749 (Version 1)
Quarter: 2019Q4

REPORT INFORMATION
  Report Type: Spontaneous
  Country: US (occurrence: US)
  Receive Date: 20191029
  Receipt Date: 20191029
  Transmission Date: 20200122
  Serious: Yes (Other)
  Sender: FDA-Public Use
  Company Number: US-GLAND PHARMA LIMITED-2076120

PATIENT
  Age: 58 Year
  Sex: Male

DRUGS (2)
  1. ADENOSINE. [Suspect]
     Active Substance: ADENOSINE
     Indication: SUPRAVENTRICULAR TACHYCARDIA
     Route: 040
  2. ADENOSINE REGIMEN [Suspect]
     Active Substance: ADENOSINE
     Route: 040

REACTIONS (1)
  - Complex regional pain syndrome [Recovering/Resolving]
